FAERS Safety Report 21464008 (Version 1)
Quarter: 2022Q4

REPORT INFORMATION
  Report Type: Spontaneous
  Country: US (occurrence: US)
  Receive Date: 20221017
  Receipt Date: 20221017
  Transmission Date: 20230113
  Serious: Yes (Other)
  Sender: FDA-Public Use
  Company Number: US-AUROBINDO-AUR-APL-2022-042442

PATIENT
  Age: 81 Year
  Sex: Male

DRUGS (52)
  1. SERTRALINE [Suspect]
     Active Substance: SERTRALINE HYDROCHLORIDE
     Indication: Chronic obstructive pulmonary disease
     Dosage: 200 MILLIGRAM
     Route: 048
  2. SERTRALINE [Suspect]
     Active Substance: SERTRALINE HYDROCHLORIDE
     Indication: Hypertension
  3. SERTRALINE [Suspect]
     Active Substance: SERTRALINE HYDROCHLORIDE
     Indication: Hyperlipidaemia
  4. SERTRALINE [Suspect]
     Active Substance: SERTRALINE HYDROCHLORIDE
     Indication: Depression
  5. SERTRALINE [Suspect]
     Active Substance: SERTRALINE HYDROCHLORIDE
     Indication: Stress
  6. SERTRALINE [Suspect]
     Active Substance: SERTRALINE HYDROCHLORIDE
     Indication: Pain
  7. SIMVASTATIN [Suspect]
     Active Substance: SIMVASTATIN
     Indication: Chronic obstructive pulmonary disease
     Dosage: 40 MILLIGRAM, AT BED TIME
     Route: 048
  8. SIMVASTATIN [Suspect]
     Active Substance: SIMVASTATIN
     Indication: Hypertension
  9. SIMVASTATIN [Suspect]
     Active Substance: SIMVASTATIN
     Indication: Hyperlipidaemia
  10. SIMVASTATIN [Suspect]
     Active Substance: SIMVASTATIN
     Indication: Depression
  11. SIMVASTATIN [Suspect]
     Active Substance: SIMVASTATIN
     Indication: Stress
  12. SIMVASTATIN [Suspect]
     Active Substance: SIMVASTATIN
     Indication: Pain
  13. MIRTAZAPINE [Suspect]
     Active Substance: MIRTAZAPINE
     Indication: Chronic obstructive pulmonary disease
     Dosage: 30 MILLIGRAM, AT BED TIME
     Route: 048
  14. MIRTAZAPINE [Suspect]
     Active Substance: MIRTAZAPINE
     Indication: Hypertension
  15. MIRTAZAPINE [Suspect]
     Active Substance: MIRTAZAPINE
     Indication: Hyperlipidaemia
  16. MIRTAZAPINE [Suspect]
     Active Substance: MIRTAZAPINE
     Indication: Depression
  17. MIRTAZAPINE [Suspect]
     Active Substance: MIRTAZAPINE
     Indication: Stress
  18. MIRTAZAPINE [Suspect]
     Active Substance: MIRTAZAPINE
     Indication: Pain
  19. LISINOPRIL [Suspect]
     Active Substance: LISINOPRIL
     Indication: Chronic obstructive pulmonary disease
     Dosage: 10 MILLIGRAM, DAILY
     Route: 048
  20. LISINOPRIL [Suspect]
     Active Substance: LISINOPRIL
     Indication: Hypertension
  21. LISINOPRIL [Suspect]
     Active Substance: LISINOPRIL
     Indication: Hyperlipidaemia
  22. LISINOPRIL [Suspect]
     Active Substance: LISINOPRIL
     Indication: Depression
  23. LISINOPRIL [Suspect]
     Active Substance: LISINOPRIL
     Indication: Stress
  24. LISINOPRIL [Suspect]
     Active Substance: LISINOPRIL
     Indication: Pain
  25. OMEPRAZOLE [Suspect]
     Active Substance: OMEPRAZOLE
     Indication: Chronic obstructive pulmonary disease
     Dosage: 20 MILLIGRAM, TWO TIMES A DAY
     Route: 048
  26. OMEPRAZOLE [Suspect]
     Active Substance: OMEPRAZOLE
     Indication: Hypertension
  27. OMEPRAZOLE [Suspect]
     Active Substance: OMEPRAZOLE
     Indication: Hyperlipidaemia
  28. OMEPRAZOLE [Suspect]
     Active Substance: OMEPRAZOLE
     Indication: Depression
  29. OMEPRAZOLE [Suspect]
     Active Substance: OMEPRAZOLE
     Indication: Stress
  30. OMEPRAZOLE [Suspect]
     Active Substance: OMEPRAZOLE
     Indication: Pain
  31. BUSPIRONE HYDROCHLORIDE [Suspect]
     Active Substance: BUSPIRONE HYDROCHLORIDE
     Indication: Chronic obstructive pulmonary disease
     Dosage: 15 MILLIGRAM, DAILY
  32. BUSPIRONE HYDROCHLORIDE [Suspect]
     Active Substance: BUSPIRONE HYDROCHLORIDE
     Indication: Hypertension
  33. BUSPIRONE HYDROCHLORIDE [Suspect]
     Active Substance: BUSPIRONE HYDROCHLORIDE
     Indication: Hyperlipidaemia
  34. BUSPIRONE HYDROCHLORIDE [Suspect]
     Active Substance: BUSPIRONE HYDROCHLORIDE
     Indication: Depression
  35. BUSPIRONE HYDROCHLORIDE [Suspect]
     Active Substance: BUSPIRONE HYDROCHLORIDE
     Indication: Stress
  36. BUSPIRONE HYDROCHLORIDE [Suspect]
     Active Substance: BUSPIRONE HYDROCHLORIDE
     Indication: Pain
  37. TRIAZOLAM [Suspect]
     Active Substance: TRIAZOLAM
     Indication: Chronic obstructive pulmonary disease
     Dosage: 0.125 MILLIGRAM, AT BED TIME
     Route: 048
  38. TRIAZOLAM [Suspect]
     Active Substance: TRIAZOLAM
     Indication: Hypertension
  39. TRIAZOLAM [Suspect]
     Active Substance: TRIAZOLAM
     Indication: Hyperlipidaemia
  40. TRIAZOLAM [Suspect]
     Active Substance: TRIAZOLAM
     Indication: Depression
  41. TRIAZOLAM [Suspect]
     Active Substance: TRIAZOLAM
     Indication: Stress
  42. TRIAZOLAM [Suspect]
     Active Substance: TRIAZOLAM
     Indication: Pain
  43. OXYCODONE AND ACETAMINOPHEN [Suspect]
     Active Substance: ACETAMINOPHEN\OXYCODONE HYDROCHLORIDE
     Dosage: 10MG/650MG EVERY 6H AS NEEDED
     Route: 048
  44. MOMETASONE [Concomitant]
     Active Substance: MOMETASONE
     Indication: Product used for unknown indication
     Dosage: UNK
     Route: 065
  45. ALBUTEROL [Concomitant]
     Active Substance: ALBUTEROL
     Indication: Product used for unknown indication
     Dosage: UNK
     Route: 065
  46. FORMOTEROL [Concomitant]
     Active Substance: FORMOTEROL
     Indication: Product used for unknown indication
     Dosage: UNK
     Route: 065
  47. ASPIRIN [Concomitant]
     Active Substance: ASPIRIN
     Indication: Product used for unknown indication
     Dosage: UNK
     Route: 065
  48. METFORMIN [Concomitant]
     Active Substance: METFORMIN HYDROCHLORIDE
     Indication: Product used for unknown indication
     Dosage: UNK
     Route: 065
  49. CHOLECALCIFEROL [Concomitant]
     Active Substance: CHOLECALCIFEROL
     Indication: Product used for unknown indication
     Dosage: UNK
     Route: 065
  50. CARBOXYMETHYLCELLULOSE [Concomitant]
     Active Substance: CARBOXYMETHYLCELLULOSE
     Indication: Product used for unknown indication
     Dosage: UNK
     Route: 065
  51. DORZOLAMIDE [Concomitant]
     Active Substance: DORZOLAMIDE
     Indication: Product used for unknown indication
     Dosage: UNK
     Route: 065
  52. TRAVOPROST [Concomitant]
     Active Substance: TRAVOPROST
     Indication: Product used for unknown indication
     Dosage: UNK
     Route: 065

REACTIONS (1)
  - Chronic obstructive pulmonary disease [Unknown]
